FAERS Safety Report 7179364-4 (Version None)
Quarter: 2010Q4

REPORT INFORMATION
  Report Type: 
  Country: None (occurrence: None)
  Receive Date: 20101208
  Receipt Date: 20101123
  Transmission Date: 20110411
  Serious: Yes (Hospitalization)
  Sender: FDA-Public Use
  Company Number: 022839

PATIENT
  Sex: Female
  Weight: 75 kg

DRUGS (8)
  1. VIMPAT [Suspect]
     Indication: EPILEPSY
     Dosage: 50 MB BID, TO BE INCREASED 2X BY 50 MG/WEEK UP A TARGET DOSE OF 400 MG IF NECESSAY ORAL
     Route: 048
     Dates: start: 20100604
  2. KEPPRA [Suspect]
     Indication: EPILEPSY
     Dosage: 500 MG, 500 MG (2-2-2) 2EVERY 8 HOURS ORAL
     Route: 048
     Dates: start: 20100913
  3. BISOPROLOL [Concomitant]
  4. ATACAND [Concomitant]
  5. NOVAMNSULFON [Concomitant]
  6. MAGNESIUM [Concomitant]
  7. CALCIUM [Concomitant]
  8. ALENDRONATE SODIUM [Concomitant]

REACTIONS (20)
  - APHASIA [None]
  - ARTHRALGIA [None]
  - BUNDLE BRANCH BLOCK RIGHT [None]
  - DEMENTIA [None]
  - DIARRHOEA [None]
  - DYSPHAGIA [None]
  - EPILEPSY [None]
  - GAIT DISTURBANCE [None]
  - HAEMATOMA [None]
  - HAEMORRHAGE [None]
  - LOGORRHOEA [None]
  - MEAN CELL HAEMOGLOBIN CONCENTRATION INCREASED [None]
  - MEAN CELL HAEMOGLOBIN DECREASED [None]
  - MONOPARESIS [None]
  - NEOLOGISM [None]
  - PAIN IN EXTREMITY [None]
  - POSTICTAL PARALYSIS [None]
  - SPEECH DISORDER [None]
  - VASCULAR ENCEPHALOPATHY [None]
  - VOMITING [None]
